FAERS Safety Report 15576370 (Version 2)
Quarter: 2018Q4

REPORT INFORMATION
  Report Type: Spontaneous
  Country: GB (occurrence: GB)
  Receive Date: 20181101
  Receipt Date: 20181105
  Transmission Date: 20190205
  Serious: Yes (Hospitalization, Other)
  Sender: FDA-Public Use
  Company Number: PHHY2018GB143718

PATIENT
  Age: 16 Year
  Sex: Male

DRUGS (3)
  1. ILUVIEN [Suspect]
     Active Substance: FLUOCINOLONE ACETONIDE
     Indication: DIABETIC RETINAL OEDEMA
     Dosage: 0.25 UG, UNK
     Route: 031
  2. ILUVIEN [Suspect]
     Active Substance: FLUOCINOLONE ACETONIDE
     Indication: CYSTOID MACULAR OEDEMA
  3. AZOPT [Suspect]
     Active Substance: BRINZOLAMIDE
     Indication: CYSTOID MACULAR OEDEMA
     Dosage: UNK
     Route: 065

REACTIONS (4)
  - Blindness [Unknown]
  - Glaucoma [Unknown]
  - Off label use [Unknown]
  - Intraocular pressure increased [Unknown]

NARRATIVE: CASE EVENT DATE: 20150217
